FAERS Safety Report 4940634-9 (Version None)
Quarter: 2006Q1

REPORT INFORMATION
  Report Type: 
  Country: None (occurrence: None)
  Receive Date: 20060206
  Receipt Date: 20051006
  Transmission Date: 20060701
  Serious: Yes (Other)
  Sender: FDA-Public Use
  Company Number: MEDI-0003726

PATIENT
  Age: 69 Year
  Sex: Male

DRUGS (15)
  1. ETHYOL [Suspect]
     Indication: CHEMOTHERAPY
     Dosage: 500 MG, 5 IN 1 WK, SUBCUTANEOUS
     Route: 058
     Dates: start: 20050718, end: 20050907
  2. ETHYOL [Suspect]
     Indication: RADIOTHERAPY
     Dosage: 500 MG, 5 IN 1 WK, SUBCUTANEOUS
     Route: 058
     Dates: start: 20050718, end: 20050907
  3. RADIATION THERAPY [Concomitant]
  4. SILVADENE (SULFADIAZINE SILVER) [Concomitant]
  5. FLUOROURACIL [Concomitant]
  6. CISPLATIN [Concomitant]
  7. ZOFRAN [Concomitant]
  8. LORATADINE [Concomitant]
  9. ACETAMINOPHEN AND OXYCODONE HCL [Concomitant]
  10. OMEPRAZOLE [Concomitant]
  11. TRIAMCINOLONE ACETONIDE [Concomitant]
  12. HYDROCORTISONE [Concomitant]
  13. POTASSIUM IODIDE [Concomitant]
  14. BUROW'S SOLUTION (ALUMINIUM ACETATE SOLUTION) [Concomitant]
  15. PREDNISONE [Concomitant]

REACTIONS (16)
  - BLISTER [None]
  - EPISTAXIS [None]
  - ERYTHEMA MULTIFORME [None]
  - INJECTION SITE PAIN [None]
  - INJECTION SITE RASH [None]
  - INJECTION SITE REACTION [None]
  - LIP EROSION [None]
  - MUCOSAL EROSION [None]
  - NASAL DRYNESS [None]
  - RADIATION SKIN INJURY [None]
  - RASH GENERALISED [None]
  - RASH PAPULAR [None]
  - RASH PRURITIC [None]
  - SKIN BURNING SENSATION [None]
  - SKIN EXFOLIATION [None]
  - STEVENS-JOHNSON SYNDROME [None]
